FAERS Safety Report 5917225-6 (Version None)
Quarter: 2008Q4

REPORT INFORMATION
  Report Type: 
  Country: None (occurrence: None)
  Receive Date: 20081014
  Receipt Date: 20081007
  Transmission Date: 20090506
  Serious: Yes (Life-Threatening, Hospitalization)
  Sender: FDA-Public Use
  Company Number: IT-AMGEN-UK291187

PATIENT
  Sex: Female
  Weight: 69 kg

DRUGS (18)
  1. NEUPOGEN [Suspect]
     Indication: BONE MARROW TRANSPLANT
     Route: 058
     Dates: start: 20070929, end: 20071119
  2. CARMUSTINE [Concomitant]
  3. ETOPOSIDE [Concomitant]
  4. ARA-C [Concomitant]
  5. MELPHALAN [Concomitant]
  6. ANTITHROMBIN III [Concomitant]
     Route: 042
     Dates: start: 20071005, end: 20071009
  7. CORDARONE [Concomitant]
     Route: 048
     Dates: start: 20071004, end: 20071101
  8. ATENOLOL [Concomitant]
     Route: 048
     Dates: start: 20071007, end: 20071119
  9. RETINOL [Concomitant]
     Route: 047
     Dates: start: 20071020, end: 20071107
  10. LEVOFLOXACIN [Concomitant]
     Route: 048
     Dates: start: 20071031, end: 20071115
  11. PROGESTOGENS [Concomitant]
     Route: 065
  12. POTASSIUM CANRENOATE [Concomitant]
     Route: 042
     Dates: start: 20071008, end: 20071020
  13. TRANEXAMIC ACID [Concomitant]
     Route: 042
     Dates: start: 20071012, end: 20071119
  14. ETHINYL ESTRADIOL TAB [Concomitant]
     Route: 048
     Dates: start: 20071020, end: 20071119
  15. CLONIDINE HCL [Concomitant]
     Dates: start: 20070921
  16. FLUCONAZOLE [Concomitant]
     Dates: start: 20071102
  17. FLUPHENAZINE DECANOATE [Concomitant]
     Route: 030
  18. DOPAMINE HYDROCHLORIDE [Concomitant]
     Route: 042
     Dates: start: 20071003, end: 20071007

REACTIONS (10)
  - ATRIAL FIBRILLATION [None]
  - BACTERIAL DIARRHOEA [None]
  - BONE MARROW TRANSPLANT [None]
  - IATROGENIC INJURY [None]
  - JAUNDICE [None]
  - NEUTROPENIA [None]
  - PANCYTOPENIA [None]
  - PYREXIA [None]
  - SEPTIC SHOCK [None]
  - THROMBOCYTOPENIA [None]
